FAERS Safety Report 9404785 (Version 1)
Quarter: 2013Q3

REPORT INFORMATION
  Report Type: Report from Study
  Country: US (occurrence: US)
  Receive Date: 20130717
  Receipt Date: 20130717
  Transmission Date: 20140515
  Serious: Yes (Other)
  Sender: FDA-Public Use
  Company Number: US-ROCHE-1246010

PATIENT
  Sex: 0

DRUGS (3)
  1. BEVACIZUMAB [Suspect]
     Indication: NEOPLASM
     Route: 042
  2. SORAFENIB [Suspect]
     Indication: NEOPLASM
     Dosage: ONCE OR TWICE DAILY
     Route: 065
  3. TEMSIROLIMUS [Suspect]
     Indication: NEOPLASM
     Route: 042

REACTIONS (8)
  - Fatigue [Unknown]
  - Nausea [Unknown]
  - Pain [Unknown]
  - Thrombocytopenia [Unknown]
  - Diarrhoea [Unknown]
  - Vomiting [Unknown]
  - Headache [Unknown]
  - Hypertriglyceridaemia [Unknown]
